FAERS Safety Report 5130280-9 (Version None)
Quarter: 2006Q4

REPORT INFORMATION
  Report Type: 
  Country: None (occurrence: None)
  Receive Date: 20061018
  Receipt Date: 20061018
  Transmission Date: 20070319
  Serious: Yes (Other)
  Sender: FDA-Public Use
  Company Number: None

PATIENT
  Sex: Male
  Weight: 113.3993 kg

DRUGS (2)
  1. TRASYLOL [Suspect]
     Indication: OPERATIVE HAEMORRHAGE
     Dates: start: 20060720, end: 20060720
  2. TRASYLOL [Suspect]
     Indication: PROPHYLAXIS
     Dates: start: 20060720, end: 20060720

REACTIONS (2)
  - POST PROCEDURAL COMPLICATION [None]
  - RENAL FAILURE ACUTE [None]
